FAERS Safety Report 9851418 (Version 1)
Quarter: 2014Q1

REPORT INFORMATION
  Report Type: Spontaneous
  Country: US (occurrence: US)
  Receive Date: 20140129
  Receipt Date: 20140129
  Transmission Date: 20141002
  Serious: No
  Sender: FDA-Public Use
  Company Number: US-009507513-1401USA012550

PATIENT
  Age: 57 Year
  Sex: Female

DRUGS (1)
  1. NASONEX [Suspect]
     Dosage: 1 DF, QD (ONE SPRAY EACH NOSTRIL ONCE A DAY)
     Route: 045
     Dates: start: 20131201

REACTIONS (3)
  - Drug dose omission [Unknown]
  - Product packaging quantity issue [Unknown]
  - Product packaging quantity issue [Unknown]
